FAERS Safety Report 4429572-8 (Version None)
Quarter: 2004Q3

REPORT INFORMATION
  Report Type: 
  Country: None (occurrence: None)
  Receive Date: 20040816
  Receipt Date: 20020923
  Transmission Date: 20050211
  Serious: Yes (Other)
  Sender: FDA-Public Use
  Company Number: EMADSS2001005200

PATIENT
  Age: 54 Year
  Sex: Female
  Weight: 86.4 kg

DRUGS (3)
  1. TOPIRAMATE [Suspect]
     Indication: OBESITY
     Dosage: 256 MG, IN 1 DAY, ORAL
     Route: 048
     Dates: start: 20000927, end: 20011008
  2. HORMONIN (TABLETS) HORMONIN [Concomitant]
  3. SALBUTAMOL (SPRAY) SALBUTAMOL [Concomitant]

REACTIONS (3)
  - PARAESTHESIA [None]
  - PERIPHERAL SENSORY NEUROPATHY [None]
  - SENSORY LOSS [None]
